FAERS Safety Report 7118120 (Version 3)
Quarter: 2013Q3

REPORT INFORMATION
  Report Type: Spontaneous
  Country: US (occurrence: None)
  Receive Date: 20090908
  Receipt Date: 20130715
  Transmission Date: 20140515
  Serious: Yes (Death, Hospitalization)
  Sender: FDA-Public Use
  Company Number: AUR-APU-2009-00558

PATIENT
  Age: 1 Day
  Sex: Male

DRUGS (6)
  1. ZIDOVUDINE [Suspect]
     Indication: PROPHYLAXIS AGAINST HIV INFECTION
     Dosage: 4 MG/KG - Q12HOURS, FOR 7 DAYS AFTER BIRTH
  2. NEVIRAPINE (NEVIRAPINE) [Suspect]
     Indication: PROPHYLAXIS AGAINST HIV INFECTION
     Dosage: 2 MG/KG - X1
  3. EMTRICITABINE+TENOFOVIR [Suspect]
     Indication: PROPHYLAXIS AGAINST HIV INFECTION
     Dosage: 1 DOSE AFTER BIRTH
  4. NEVIRAPINE [Suspect]
     Indication: PROPHYLAXIS AGAINST HIV INFECTION
     Dosage: 200 MG - X1 - TRANSPLACENTALLY
     Route: 064
  5. ZIDOVUDINE [Suspect]
     Indication: PROPHYLAXIS AGAINST HIV INFECTION
     Dosage: 300MG - BID - TRANSPLACENTALLY
     Route: 064
  6. TENOFOVIR DISOPROXIL FUMARATE [Suspect]
     Indication: PROPHYLAXIS AGAINST HIV INFECTION
     Dosage: 2 TABLET - X1 - TRANSPLACENTALLY
     Route: 064

REACTIONS (5)
  - Maternal drugs affecting foetus [None]
  - Caesarean section [None]
  - Dyspnoea [None]
  - Laryngomalacia [None]
  - Nervous system disorder [None]
